FAERS Safety Report 18062301 (Version 1)
Quarter: 2020Q3

REPORT INFORMATION
  Report Type: Spontaneous
  Country: DE (occurrence: DE)
  Receive Date: 20200724
  Receipt Date: 20200724
  Transmission Date: 20201103
  Serious: Yes (Hospitalization)
  Sender: FDA-Public Use
  Company Number: DE-TEVA-2020-DE-1804186

PATIENT
  Age: 17 Year
  Sex: Female
  Weight: 45 kg

DRUGS (2)
  1. CEFALEXIN [Suspect]
     Active Substance: CEPHALEXIN
     Dosage: 1000 MILLIGRAM DAILY;
     Route: 048
     Dates: start: 20200405, end: 20200405
  2. PENICILLIN?V [Concomitant]
     Active Substance: PENICILLIN V
     Indication: TONSILLITIS
     Route: 048
     Dates: start: 20200320, end: 20200329

REACTIONS (4)
  - Sensation of foreign body [Unknown]
  - Hyperventilation [Unknown]
  - Rash [Unknown]
  - Drug hypersensitivity [Unknown]

NARRATIVE: CASE EVENT DATE: 20200405
